FAERS Safety Report 7180297-8 (Version None)
Quarter: 2010Q4

REPORT INFORMATION
  Report Type: 
  Country: None (occurrence: None)
  Receive Date: 20101209
  Receipt Date: 20101122
  Transmission Date: 20110411
  Serious: Yes (Hospitalization, Other)
  Sender: FDA-Public Use
  Company Number: 2010AP002434

PATIENT
  Age: 29 Year
  Sex: Female
  Weight: 72.7 kg

DRUGS (10)
  1. TOPIRAMATE [Suspect]
     Indication: MIGRAINE PROPHYLAXIS
     Dosage: SEE IMAGE; PO
     Route: 048
  2. FLUOXETINE [Concomitant]
  3. BACLOFEN [Concomitant]
  4. MACROGOL [Concomitant]
  5. BISACODYL [Concomitant]
  6. ORAL CONTRACEPTIVE NOS [Concomitant]
  7. SUMATRIPTAN [Concomitant]
  8. PROMETHAZINE [Concomitant]
  9. PARACETAMOL [Concomitant]
  10. LORAZEPAM [Concomitant]

REACTIONS (14)
  - BACK PAIN [None]
  - CATATONIA [None]
  - COMMUNICATION DISORDER [None]
  - CONDITION AGGRAVATED [None]
  - CRYING [None]
  - CSF PROTEIN DECREASED [None]
  - DECREASED APPETITE [None]
  - DEHYDRATION [None]
  - MIGRAINE [None]
  - MYOCLONUS [None]
  - PARANOIA [None]
  - PSYCHOTIC DISORDER [None]
  - PYREXIA [None]
  - SCREAMING [None]
